FAERS Safety Report 6184570-1 (Version None)
Quarter: 2009Q2

REPORT INFORMATION
  Report Type: 
  Country: None (occurrence: None)
  Receive Date: 20090508
  Receipt Date: 20090428
  Transmission Date: 20091009
  Serious: Yes (Other)
  Sender: FDA-Public Use
  Company Number: US-CELGENEUS-163-21880-09041231

PATIENT
  Sex: Male
  Weight: 78.72 kg

DRUGS (15)
  1. REVLIMID [Suspect]
     Indication: MULTIPLE MYELOMA
     Route: 048
     Dates: start: 20090226, end: 20090322
  2. REVLIMID [Suspect]
     Route: 048
     Dates: start: 20090329, end: 20090419
  3. PREDNISONE [Suspect]
     Indication: PREMEDICATION
     Route: 065
     Dates: end: 20090401
  4. PREDNISONE [Suspect]
     Dosage: 10MG, THEN 7.5MG, AND THEN 5MG
     Route: 048
     Dates: start: 20090401
  5. PREDNISONE [Suspect]
     Route: 048
  6. BENADRYL [Suspect]
     Indication: PREMEDICATION
     Route: 048
  7. DEXAMETHASONE 4MG TAB [Concomitant]
     Indication: MULTIPLE MYELOMA
     Route: 048
  8. ASPIRIN [Concomitant]
     Indication: DRUG USE FOR UNKNOWN INDICATION
     Route: 065
  9. ATENOLOL [Concomitant]
     Indication: DRUG USE FOR UNKNOWN INDICATION
     Route: 048
  10. CALCIUM CARBONATE [Concomitant]
     Indication: DRUG USE FOR UNKNOWN INDICATION
     Route: 048
  11. K-DUR [Concomitant]
     Indication: DRUG USE FOR UNKNOWN INDICATION
     Route: 048
  12. RED BLOOD CELLS [Concomitant]
     Indication: DRUG USE FOR UNKNOWN INDICATION
     Dosage: 2 UNITS
     Route: 065
  13. TYLENOL [Concomitant]
     Indication: DRUG USE FOR UNKNOWN INDICATION
     Route: 048
  14. POTASSIUM CHLORIDE [Concomitant]
     Indication: DRUG USE FOR UNKNOWN INDICATION
     Route: 065
  15. VITAMIN D [Concomitant]
     Indication: DRUG USE FOR UNKNOWN INDICATION
     Dosage: 1000 UNITS
     Route: 065

REACTIONS (7)
  - ADRENAL INSUFFICIENCY [None]
  - AGITATION [None]
  - CONFUSIONAL STATE [None]
  - DYSPNOEA [None]
  - FATIGUE [None]
  - HALLUCINATION [None]
  - LETHARGY [None]
